FAERS Safety Report 8438199 (Version 4)
Quarter: 2012Q4

REPORT INFORMATION
  Report Type: 
  Country: US (occurrence: US)
  Receive Date: 20120302
  Receipt Date: 20121016
  Transmission Date: 20130627
  Serious: Yes (Hospitalization, Disabling, Other)
  Sender: FDA-Public Use
  Company Number: US-009507513-1202USA04363

PATIENT

DRUGS (2)
  1. FOSAMAX [Suspect]
     Indication: OSTEOPOROSIS
     Dosage: UNK
     Route: 048
     Dates: start: 1998
  2. FOSAMAX [Suspect]
     Dosage: 70 mg, qw
     Route: 048
     Dates: end: 2011

REACTIONS (68)
  - Femur fracture [Unknown]
  - Closed fracture manipulation [Unknown]
  - Fibula fracture [Unknown]
  - Colon cancer stage III [Unknown]
  - Colectomy [Unknown]
  - Hernia repair [Unknown]
  - Laparoscopy [Unknown]
  - Deafness [Unknown]
  - Knee arthroplasty [Unknown]
  - Blood disorder [Unknown]
  - Osteoarthritis [Unknown]
  - Osteopenia [Unknown]
  - Acute sinusitis [Unknown]
  - Phlebitis [Unknown]
  - Tendon rupture [Unknown]
  - Thyroid cyst [Unknown]
  - Gastric disorder [Unknown]
  - Hypothyroidism [Unknown]
  - Diverticulum [Unknown]
  - Colon dysplasia [Unknown]
  - Otitis media [Unknown]
  - Bronchitis bacterial [Unknown]
  - Middle ear effusion [Unknown]
  - Short-bowel syndrome [Unknown]
  - Adnexa uteri mass [Unknown]
  - Hepatic cyst [Unknown]
  - Haemangioma of liver [Unknown]
  - Spigelian hernia [Unknown]
  - Breast mass [Unknown]
  - Ovarian mass [Unknown]
  - Arteriosclerosis coronary artery [Unknown]
  - Spinal osteoarthritis [Unknown]
  - Uterine leiomyoma [Unknown]
  - Postmenopausal haemorrhage [Unknown]
  - Fatigue [Unknown]
  - Mucosal atrophy [Unknown]
  - Cyanosis [Unknown]
  - Cardiomegaly [Unknown]
  - Loose body in joint [Unknown]
  - Deep vein thrombosis [Unknown]
  - Phlebitis superficial [Unknown]
  - Dyspnoea [Unknown]
  - Palpitations [Unknown]
  - Gastrointestinal disorder [Unknown]
  - Postoperative adhesion [Unknown]
  - Joint instability [Unknown]
  - Spinal osteoarthritis [Unknown]
  - Mass [Unknown]
  - Endometrial disorder [Unknown]
  - Biopsy breast [Unknown]
  - Hypertension [Unknown]
  - Restless legs syndrome [Unknown]
  - Muscular weakness [Unknown]
  - Hyperthyroidism [Unknown]
  - Hypercholesterolaemia [Unknown]
  - Arthropathy [Unknown]
  - Chronic obstructive pulmonary disease [Not Recovered/Not Resolved]
  - Hypophosphataemia [Unknown]
  - Urinary tract infection [Unknown]
  - Left ventricular hypertrophy [Unknown]
  - Neck pain [Unknown]
  - Arthralgia [Unknown]
  - Diarrhoea [Unknown]
  - Diarrhoea [Unknown]
  - Gastrooesophageal reflux disease [Unknown]
  - Oesophageal stenosis [Unknown]
  - Back pain [Not Recovered/Not Resolved]
  - Arthralgia [Unknown]
